FAERS Safety Report 8424938-3 (Version None)
Quarter: 2012Q2

REPORT INFORMATION
  Report Type: 
  Country: None (occurrence: None)
  Receive Date: 20120611
  Receipt Date: 20120604
  Transmission Date: 20120825
  Serious: No
  Sender: FDA-Public Use
  Company Number: US-PFIZER INC-2012117240

PATIENT
  Sex: Female
  Weight: 63.492 kg

DRUGS (5)
  1. ALAVERT [Suspect]
     Indication: RHINORRHOEA
     Dosage: 10 MG, 1X/DAY
     Route: 048
     Dates: start: 20120513
  2. ALAVERT [Suspect]
     Indication: HYPERSENSITIVITY
  3. BENICAR [Concomitant]
     Indication: HYPERTENSION
     Dosage: UNK
  4. LEVOTHYROXINE [Concomitant]
     Indication: THYROID DISORDER
     Dosage: UNK
  5. BISOPROLOL [Concomitant]
     Indication: HYPERTENSION
     Dosage: UNK

REACTIONS (4)
  - DRUG EFFECT DELAYED [None]
  - RHINORRHOEA [None]
  - DRUG INEFFECTIVE [None]
  - HYPOAESTHESIA [None]
